FAERS Safety Report 5714956-8 (Version None)
Quarter: 2008Q2

REPORT INFORMATION
  Report Type: 
  Country: None (occurrence: None)
  Receive Date: 20080423
  Receipt Date: 20080408
  Transmission Date: 20081010
  Serious: Yes (Hospitalization)
  Sender: FDA-Public Use
  Company Number: US-ASTRAZENECA-2008UW08255

PATIENT
  Age: 24174 Day
  Sex: Male
  Weight: 78.2 kg

DRUGS (1)
  1. ZESTRIL [Suspect]
     Indication: HYPERTENSION
     Route: 048
     Dates: start: 20001216

REACTIONS (1)
  - BLOOD PRESSURE INCREASED [None]
